FAERS Safety Report 22231740 (Version 1)
Quarter: 2023Q2

REPORT INFORMATION
  Report Type: Spontaneous
  Country: US (occurrence: None)
  Receive Date: 20230420
  Receipt Date: 20230420
  Transmission Date: 20230721
  Serious: No
  Sender: FDA-Public Use
  Company Number: US-ROCHE-3091915

PATIENT
  Sex: Female

DRUGS (13)
  1. ESBRIET [Suspect]
     Active Substance: PIRFENIDONE
     Indication: Product used for unknown indication
     Route: 048
  2. ALBUTEROL SULFATE [Concomitant]
     Active Substance: ALBUTEROL SULFATE
  3. HYDROCODONE [Concomitant]
     Active Substance: HYDROCODONE
     Dosage: TABLET-10
  4. HYDROXYZINE [Concomitant]
     Active Substance: HYDROXYZINE HYDROCHLORIDE
  5. IPRATROPIUM [Concomitant]
     Active Substance: IPRATROPIUM
  6. LOSARTAN POTASSIUM [Concomitant]
     Active Substance: LOSARTAN POTASSIUM
  7. MUCINEX [Concomitant]
     Active Substance: GUAIFENESIN
     Dosage: 1 TABLET
  8. MYRBETRIQ [Concomitant]
     Active Substance: MIRABEGRON
     Dosage: TABLET 2
  9. PRAVASTATIN [Concomitant]
     Active Substance: PRAVASTATIN
  10. ROPINIROLE HYDROCHLORIDE [Concomitant]
     Active Substance: ROPINIROLE HYDROCHLORIDE
  11. TRADJENTA [Concomitant]
     Active Substance: LINAGLIPTIN
  12. VITAMIN B12 [Concomitant]
     Active Substance: CYANOCOBALAMIN
     Dosage: 1000 MC
  13. VITAMIN D3 [Concomitant]
     Active Substance: CHOLECALCIFEROL
     Dosage: 125 MCG

REACTIONS (2)
  - Nausea [Unknown]
  - Sluggishness [Unknown]
